FAERS Safety Report 11925433 (Version 1)
Quarter: 2016Q1

REPORT INFORMATION
  Report Type: Other
  Country: US (occurrence: US)
  Receive Date: 20160118
  Receipt Date: 20160118
  Transmission Date: 20160526
  Serious: Yes (Life-Threatening)
  Sender: FDA-Public Use
  Company Number: US-B. BRAUN MEDICAL INC.-1046584

PATIENT
  Age: 51 Year
  Sex: Male

DRUGS (3)
  1. HEPARIN SODIUM IN DEXTROSE [Suspect]
     Active Substance: HEPARIN SODIUM
     Route: 042
  2. HEPARIN [Suspect]
     Active Substance: HEPARIN SODIUM
     Route: 013
  3. HEPARIN [Suspect]
     Active Substance: HEPARIN SODIUM
     Route: 058

REACTIONS (9)
  - Acute respiratory failure [None]
  - Cardiac ventricular thrombosis [None]
  - Heparin-induced thrombocytopenia [None]
  - Pulmonary embolism [None]
  - Cardiac arrest [None]
  - Seizure [None]
  - Shock [None]
  - Disseminated intravascular coagulation [None]
  - Cerebral haemorrhage [None]
